FAERS Safety Report 12078846 (Version 1)
Quarter: 2016Q1

REPORT INFORMATION
  Report Type: Report from Study
  Country: US (occurrence: US)
  Receive Date: 20160216
  Receipt Date: 20160216
  Transmission Date: 20160526
  Serious: Yes (Hospitalization)
  Sender: FDA-Public Use
  Company Number: PHHO2016US001910

PATIENT
  Age: 80 Year
  Sex: Female

DRUGS (2)
  1. FARYDAK [Suspect]
     Active Substance: PANOBINOSTAT
     Indication: MALIGNANT MELANOMA
     Dosage: 10 MG, TIW, THURSDAY-SATURDAY-MONDAY
     Route: 048
     Dates: start: 20160107
  2. IPILIMUMAB [Suspect]
     Active Substance: IPILIMUMAB
     Indication: MALIGNANT MELANOMA
     Dosage: 3 MG/KG, QW3
     Route: 042
     Dates: start: 20160107

REACTIONS (3)
  - Groin pain [Unknown]
  - Fatigue [Unknown]
  - Confusional state [Unknown]
